FAERS Safety Report 6248231-2 (Version None)
Quarter: 2009Q2

REPORT INFORMATION
  Report Type: 
  Country: None (occurrence: None)
  Receive Date: 20090629
  Receipt Date: 20090619
  Transmission Date: 20091009
  Serious: Yes (Other)
  Sender: FDA-Public Use
  Company Number: US-SP-2009-02677

PATIENT
  Age: 17 Year
  Sex: Female

DRUGS (4)
  1. MENACTRA [Suspect]
     Indication: IMMUNISATION
     Route: 030
     Dates: start: 20090102
  2. MENACTRA [Suspect]
     Route: 030
     Dates: start: 20090102
  3. TUBERSOL [Suspect]
     Indication: TUBERCULIN TEST
     Route: 058
     Dates: start: 20090102
  4. TUBERSOL [Suspect]
     Route: 058
     Dates: start: 20090102

REACTIONS (5)
  - FATIGUE [None]
  - INFECTIOUS MONONUCLEOSIS [None]
  - LYME DISEASE [None]
  - LYMPHADENITIS [None]
  - LYMPHADENOPATHY [None]
